FAERS Safety Report 18648798 (Version 1)
Quarter: 2020Q4

REPORT INFORMATION
  Report Type: Spontaneous
  Country: CN (occurrence: CN)
  Receive Date: 20201222
  Receipt Date: 20201222
  Transmission Date: 20210114
  Serious: Yes (Other)
  Sender: FDA-Public Use
  Company Number: CN-PFIZER INC-2020498993

PATIENT
  Age: 22 Year
  Sex: Female
  Weight: 65 kg

DRUGS (1)
  1. CARBOPROST TROMETAMOL [Suspect]
     Active Substance: CARBOPROST TROMETHAMINE
     Indication: THERAPEUTIC PROCEDURE
     Dosage: 1 ML, 1X/DAY
     Dates: start: 20201020, end: 20201020

REACTIONS (6)
  - Swelling face [Recovering/Resolving]
  - Product use issue [Unknown]
  - Chest discomfort [Recovering/Resolving]
  - Sneezing [Recovering/Resolving]
  - Off label use [Unknown]
  - Erythema [Recovering/Resolving]

NARRATIVE: CASE EVENT DATE: 20201020
